FAERS Safety Report 5930537-5 (Version None)
Quarter: 2008Q4

REPORT INFORMATION
  Report Type: 
  Country: None (occurrence: None)
  Receive Date: 20081026
  Receipt Date: 20081020
  Transmission Date: 20090506
  Serious: Yes (Life-Threatening, Hospitalization)
  Sender: FDA-Public Use
  Company Number: PHHY2008DE25129

PATIENT
  Age: 68 Year
  Sex: Female

DRUGS (8)
  1. VOLTAREN [Suspect]
     Dosage: 50 MG, TID
     Route: 048
  2. FORTECORTIN [Interacting]
     Dosage: 4 MG, TID
     Route: 048
  3. SUTENT [Interacting]
     Indication: RENAL CANCER METASTATIC
     Dosage: 50 MG
     Route: 048
  4. SUTENT [Interacting]
     Indication: METASTASES TO LUNG
  5. SUTENT [Interacting]
     Indication: METASTASES TO CENTRAL NERVOUS SYSTEM
  6. OMEPRAZOLE [Concomitant]
     Dosage: 40 MG, QD
     Route: 048
  7. RAMIPRIL [Concomitant]
     Dosage: 2.5 MG, QD
     Route: 048
  8. ACETAMINOPHEN [Concomitant]
     Dosage: 500 MG, PRN
     Route: 048

REACTIONS (6)
  - ABDOMINAL PAIN [None]
  - EXPLORATIVE LAPAROTOMY [None]
  - GASTRIC ULCER PERFORATION [None]
  - GASTROINTESTINAL DISORDER [None]
  - GASTROINTESTINAL SURGERY [None]
  - WHITE BLOOD CELL COUNT INCREASED [None]
